FAERS Safety Report 8485536-9 (Version None)
Quarter: 2012Q3

REPORT INFORMATION
  Report Type: 
  Country: None (occurrence: None)
  Receive Date: 20120703
  Receipt Date: 20120625
  Transmission Date: 20120928
  Serious: Yes (Other)
  Sender: FDA-Public Use
  Company Number: DE-UCBSA-058799

PATIENT
  Sex: Male
  Weight: 78 kg

DRUGS (7)
  1. ROPINIROL [Concomitant]
     Dates: start: 20090101
  2. TILIDIN [Concomitant]
     Dosage: 50/4
     Dates: start: 20090101
  3. NEUPRO [Suspect]
     Indication: PARKINSON'S DISEASE
     Route: 062
     Dates: start: 20110601
  4. NEUPRO [Suspect]
     Indication: RESTLESS LEGS SYNDROME
     Route: 062
     Dates: start: 20110601
  5. ROPINIROL [Concomitant]
     Indication: RESTLESS LEGS SYNDROME
     Dates: start: 20090101
  6. TILIDIN [Concomitant]
     Indication: RESTLESS LEGS SYNDROME
     Dosage: 50/4  DAILY DOSE :4 TABLETS
     Dates: start: 20090101
  7. CLONAZEPAM [Concomitant]
     Indication: RESTLESS LEGS SYNDROME
     Dates: start: 20090101

REACTIONS (4)
  - APPLICATION SITE ERYTHEMA [None]
  - DERMATITIS [None]
  - PRURITUS [None]
  - APPLICATION SITE PRURITUS [None]
